FAERS Safety Report 25613454 (Version 1)
Quarter: 2025Q3

REPORT INFORMATION
  Report Type: Spontaneous
  Country: US (occurrence: None)
  Receive Date: 20250728
  Receipt Date: 20250728
  Transmission Date: 20251020
  Serious: No
  Sender: FDA-CTU
  Company Number: None

PATIENT
  Sex: Male

DRUGS (2)
  1. PEMGARDA [Suspect]
     Active Substance: PEMIVIBART
     Route: 042
     Dates: start: 20250723, end: 20250723
  2. SODIUM CHLORIDE [Suspect]
     Active Substance: SODIUM CHLORIDE

REACTIONS (2)
  - Infusion site pain [None]
  - Infusion site swelling [None]

NARRATIVE: CASE EVENT DATE: 20250723
